FAERS Safety Report 8203342-7 (Version None)
Quarter: 2012Q1

REPORT INFORMATION
  Report Type: 
  Country: None (occurrence: None)
  Receive Date: 20120312
  Receipt Date: 20120306
  Transmission Date: 20120608
  Serious: Yes (Life-Threatening, Hospitalization)
  Sender: FDA-Public Use
  Company Number: FR-ASTRAZENECA-2012SE15620

PATIENT
  Age: 60 Year
  Sex: Female

DRUGS (3)
  1. SUXAMETHONIUM BIOCODEX [Suspect]
     Route: 042
     Dates: start: 20120221, end: 20120221
  2. SUFENTANIL CITRATE [Suspect]
     Route: 042
     Dates: start: 20120221, end: 20120221
  3. DIPRIVAN [Suspect]
     Route: 042
     Dates: start: 20120221, end: 20120221

REACTIONS (1)
  - ANAPHYLACTIC SHOCK [None]
